FAERS Safety Report 21804700 (Version 1)
Quarter: 2023Q1

REPORT INFORMATION
  Report Type: Report from Study
  Country: US (occurrence: US)
  Receive Date: 20230102
  Receipt Date: 20230102
  Transmission Date: 20230418
  Serious: No
  Sender: FDA-Public Use
  Company Number: US-ABBVIE-4255237

PATIENT
  Sex: Male

DRUGS (1)
  1. VENCLEXTA [Suspect]
     Active Substance: VENETOCLAX
     Indication: Product used for unknown indication
     Dosage: FORM STRENGTH- 100MG?TAKE 1 TABLET BY MOUTH DAILY WITH FOOD AND WATER FOR 5 DAYS OF 28 DAY CYCLE
     Route: 048

REACTIONS (1)
  - Off label use [Unknown]
